FAERS Safety Report 18562659 (Version 1)
Quarter: 2020Q4

REPORT INFORMATION
  Report Type: Other
  Country: IR (occurrence: IR)
  Receive Date: 20201130
  Receipt Date: 20201130
  Transmission Date: 20210114
  Serious: Yes (Life-Threatening, Hospitalization, Disabling)
  Sender: FDA-Public Use
  Company Number: IR-NOSTRUM LABORATORIES, INC.-2096471

PATIENT
  Age: 43 Year
  Sex: Female

DRUGS (2)
  1. TRIAMTERENE AND HYDROCHLOROTHIAZIDE [Concomitant]
     Active Substance: HYDROCHLOROTHIAZIDE\TRIAMTERENE
     Route: 048
  2. VALPROIC ACID SOLUTION [Suspect]
     Active Substance: VALPROIC ACID
     Indication: PRODUCT USED FOR UNKNOWN INDICATION
     Route: 048

REACTIONS (4)
  - Acute kidney injury [Recovered/Resolved with Sequelae]
  - Drug-induced liver injury [Recovered/Resolved]
  - Rhabdomyolysis [Recovered/Resolved]
  - Thoracotomy [Recovered/Resolved]
